FAERS Safety Report 13510258 (Version 1)
Quarter: 2017Q2

REPORT INFORMATION
  Report Type: Spontaneous
  Country: US (occurrence: US)
  Receive Date: 20170503
  Receipt Date: 20170503
  Transmission Date: 20170830
  Serious: Yes (Other)
  Sender: FDA-Public Use
  Company Number: US-JNJFOC-20170430077

PATIENT
  Sex: Male

DRUGS (3)
  1. PREDNISONE. [Concomitant]
     Active Substance: PREDNISONE
     Indication: HORMONE-REFRACTORY PROSTATE CANCER
     Route: 065
  2. DEXAMETHASONE. [Suspect]
     Active Substance: DEXAMETHASONE
     Indication: HORMONE-REFRACTORY PROSTATE CANCER
     Route: 065
  3. ABIRATERONE ACETATE [Suspect]
     Active Substance: ABIRATERONE ACETATE
     Indication: HORMONE-REFRACTORY PROSTATE CANCER
     Dosage: ESCALATING DOSE OF 250 (6 PATIENTS), 500 (9 PATIENTS), 750 (6 PATIENTS) AND 1000 MG (12 PATIENTS)
     Route: 048

REACTIONS (23)
  - Hot flush [Unknown]
  - Fatigue [Unknown]
  - Oedema peripheral [Unknown]
  - Headache [Unknown]
  - Hypokalaemia [Unknown]
  - Hypertension [Unknown]
  - Oedema [Unknown]
  - Abdominal pain [Unknown]
  - Back pain [Unknown]
  - Cough [Unknown]
  - Hypotension [Unknown]
  - Constipation [Unknown]
  - Decreased appetite [Unknown]
  - Dizziness [Unknown]
  - Dry mouth [Unknown]
  - Asthenia [Unknown]
  - Muscular weakness [Unknown]
  - Vomiting [Unknown]
  - Nausea [Unknown]
  - Diarrhoea [Unknown]
  - Dyspepsia [Unknown]
  - Arthralgia [Unknown]
  - Hyperglycaemia [Unknown]
